FAERS Safety Report 9438305 (Version 1)
Quarter: 2013Q3

REPORT INFORMATION
  Report Type: Spontaneous
  Country: US (occurrence: US)
  Receive Date: 20130802
  Receipt Date: 20130802
  Transmission Date: 20140515
  Serious: Yes (Death, Other)
  Sender: FDA-Public Use
  Company Number: US-BRISTOL-MYERS SQUIBB COMPANY-17135716

PATIENT
  Sex: Female

DRUGS (2)
  1. WARFARIN SODIUM [Suspect]
  2. LOVENOX [Suspect]

REACTIONS (2)
  - Gastrointestinal haemorrhage [Fatal]
  - International normalised ratio increased [Unknown]
